FAERS Safety Report 9523616 (Version 2)
Quarter: 2013Q3

REPORT INFORMATION
  Report Type: Spontaneous
  Country: US (occurrence: US)
  Receive Date: 20130913
  Receipt Date: 20130913
  Transmission Date: 20140515
  Serious: Yes (Hospitalization, Other)
  Sender: FDA-Public Use
  Company Number: US-TAKEDA-TPA2012A01551

PATIENT
  Sex: 0

DRUGS (20)
  1. ACTOS [Suspect]
     Indication: TYPE 2 DIABETES MELLITUS
     Dosage: 45 MG, QD
     Route: 048
     Dates: start: 2001, end: 2007
  2. ACTOS [Suspect]
     Dosage: 30 MG, QD
     Route: 048
     Dates: start: 2008, end: 2009
  3. COREG [Suspect]
     Indication: CARDIAC FAILURE CONGESTIVE
     Route: 048
     Dates: start: 2007
  4. COREG [Suspect]
     Route: 048
     Dates: start: 201201
  5. LOVAZA [Concomitant]
     Route: 048
  6. DIPROLINE [Concomitant]
     Route: 061
  7. LISINOPRIL [Concomitant]
     Route: 048
  8. LISINOPRIL [Concomitant]
     Route: 048
  9. LISINOPRIL [Concomitant]
     Route: 048
     Dates: start: 201109
  10. ASA [Concomitant]
     Route: 048
  11. ATROVENT [Concomitant]
  12. LOVAZA [Concomitant]
  13. CLOBETASOL [Concomitant]
  14. FLUNARCA [Concomitant]
  15. MVI [Concomitant]
  16. NIACIN [Concomitant]
     Route: 048
  17. NORCO [Concomitant]
     Indication: PAIN
     Route: 048
  18. PRAVASTATIN [Concomitant]
  19. PROCUR [Concomitant]
  20. DEMADEX [Concomitant]
     Route: 048

REACTIONS (8)
  - Myocardial infarction [Unknown]
  - Arthroscopic surgery [Recovered/Resolved]
  - Cardiac failure congestive [Unknown]
  - Weight increased [Unknown]
  - Fluid retention [Recovering/Resolving]
  - Dyspnoea [Recovering/Resolving]
  - Blood pressure fluctuation [Unknown]
  - Arthralgia [Unknown]
